FAERS Safety Report 7304098-2 (Version None)
Quarter: 2011Q1

REPORT INFORMATION
  Report Type: 
  Country: None (occurrence: None)
  Receive Date: 20110221
  Receipt Date: 20110216
  Transmission Date: 20110831
  Serious: Yes (Death)
  Sender: FDA-Public Use
  Company Number: PHHY2011US13434

PATIENT
  Sex: Male

DRUGS (9)
  1. FISH OIL [Concomitant]
  2. COQ10 [Concomitant]
     Dosage: 10 MG, UNK
  3. TYLENOL [Concomitant]
     Dosage: 325 MG, UNK
  4. AFINITOR [Suspect]
     Dosage: 10 MG, QD
     Route: 048
  5. LOPRESSOR [Concomitant]
     Dosage: 100 MG, UNK
  6. CALCIUM [Concomitant]
     Dosage: 500 UNK, UNK
  7. PROSCAR [Concomitant]
     Dosage: 5 MG, UNK
  8. AMLODIPINE [Concomitant]
     Dosage: 10 MG, UNK
  9. TRIAMTERENE AND HYDROCHLOROTHIAZIDE [Concomitant]
     Dosage: 25-50 MG

REACTIONS (1)
  - DEATH [None]
